FAERS Safety Report 12464546 (Version 1)
Quarter: 2016Q2

REPORT INFORMATION
  Report Type: Spontaneous
  Country: CN (occurrence: CN)
  Receive Date: 20160614
  Receipt Date: 20160614
  Transmission Date: 20160815
  Serious: Yes (Other)
  Sender: FDA-Public Use
  Company Number: CN-MYLANLABS-2016M1024615

PATIENT

DRUGS (8)
  1. CYCLOPHOSPHAMIDE. [Suspect]
     Active Substance: CYCLOPHOSPHAMIDE
     Indication: ACUTE MYELOID LEUKAEMIA
     Dosage: 1.8G/M2/DAY FROM DAY 3 TO 4
     Route: 065
  2. SEMUSTINE [Suspect]
     Active Substance: SEMUSTINE
     Indication: ACUTE MYELOID LEUKAEMIA
     Dosage: 250 MG/M2 ON DAY 2
     Route: 048
  3. CYTARABINE. [Suspect]
     Active Substance: CYTARABINE
     Indication: ACUTE MYELOID LEUKAEMIA
     Dosage: 2G/M2 ON DAY 8
     Route: 042
  4. CICLOSPORIN [Concomitant]
     Active Substance: CYCLOSPORINE
     Dosage: ADJUSTED TO MAINTAIN BETWEEN 150 AND 250 NG/ML UNTIL DAY +50
     Route: 048
  5. METHOTREXATE [Concomitant]
     Active Substance: METHOTREXATE
     Indication: PROPHYLAXIS AGAINST GRAFT VERSUS HOST DISEASE
     Dosage: 15 MG/M2 ON DAY +1 AND 10 MG/M2ON DAYS +3, +6 AND +11
     Route: 042
  6. HYDROXYCARBAMIDE [Suspect]
     Active Substance: HYDROXYUREA
     Indication: ACUTE MYELOID LEUKAEMIA
     Dosage: 80 MG/KG ON DAY 9
     Route: 048
  7. BUSULFAN. [Suspect]
     Active Substance: BUSULFAN
     Indication: ACUTE MYELOID LEUKAEMIA
     Dosage: 3.2MG/KG/DAY IN DIVIDED DOSE FROM DAY 5 TO 7
     Route: 042
  8. CICLOSPORIN [Concomitant]
     Active Substance: CYCLOSPORINE
     Indication: PROPHYLAXIS AGAINST GRAFT VERSUS HOST DISEASE
     Dosage: 2.5 MG/KG/ DAY, FROM DAY 1
     Route: 041

REACTIONS (1)
  - Venoocclusive liver disease [Recovered/Resolved]
